FAERS Safety Report 5584492-0 (Version None)
Quarter: 2008Q1

REPORT INFORMATION
  Report Type: 
  Country: None (occurrence: None)
  Receive Date: 20080103
  Receipt Date: 20071221
  Transmission Date: 20080703
  Serious: Yes (Hospitalization)
  Sender: FDA-Public Use
  Company Number: DSJ-2007-10738

PATIENT
  Sex: Male

DRUGS (1)
  1. OLMESARTAN MEDOXOMIL [Suspect]

REACTIONS (1)
  - INTERSTITIAL LUNG DISEASE [None]
